FAERS Safety Report 17780872 (Version 2)
Quarter: 2020Q2

REPORT INFORMATION
  Report Type: Report from Study
  Country: BR (occurrence: BR)
  Receive Date: 20200513
  Receipt Date: 20200519
  Transmission Date: 20200714
  Serious: Yes (Other)
  Sender: FDA-Public Use
  Company Number: NVSC2020BR130368

PATIENT
  Sex: Male
  Weight: 77 kg

DRUGS (2)
  1. GALVUS MET [Suspect]
     Active Substance: METFORMIN HYDROCHLORIDE\VILDAGLIPTIN
     Indication: DIABETES MELLITUS
     Dosage: 2 DF, DAILY (1000MG METFORMIN AND 50MG VILDAGLIPTIN)
     Route: 048
  2. EZETIMIBE. [Suspect]
     Active Substance: EZETIMIBE
     Indication: BLOOD CHOLESTEROL
     Dosage: 1 DF, QD (10 MG)
     Route: 048

REACTIONS (3)
  - Diabetes mellitus [Unknown]
  - Blood cholesterol increased [Recovering/Resolving]
  - Skin papilloma [Recovering/Resolving]
